FAERS Safety Report 9294198 (Version 4)
Quarter: 2013Q3

REPORT INFORMATION
  Report Type: Spontaneous
  Country: US (occurrence: US)
  Receive Date: 20130516
  Receipt Date: 20130813
  Transmission Date: 20140515
  Serious: Yes (Hospitalization)
  Sender: FDA-Public Use
  Company Number: US-PFIZER INC-2013147911

PATIENT
  Age: 69 Year
  Sex: Female

DRUGS (9)
  1. XELJANZ [Suspect]
     Indication: RHEUMATOID ARTHRITIS
     Dosage: 5 MG, 2X/DAY
     Route: 048
     Dates: start: 20130507, end: 2013
  2. PROTONIX [Concomitant]
     Dosage: 40 MG
  3. PREDNISONE [Concomitant]
     Dosage: 20 MG
  4. FUROSEMIDE [Concomitant]
     Dosage: 20 MG
  5. HYDROCHLOROTHIAZIDE [Concomitant]
     Dosage: 25 MG
  6. LEVEMIR FLEXPEN [Concomitant]
     Dosage: 100UNITS/ML
  7. ACETAMINOPHEN W/OXYCODONE [Concomitant]
     Dosage: 325-10
  8. OXYCONTIN [Concomitant]
     Dosage: 30 MG
  9. KEFLEX [Concomitant]
     Dosage: 500 MG

REACTIONS (2)
  - Infection [Recovering/Resolving]
  - Pulmonary thrombosis [Recovering/Resolving]
